FAERS Safety Report 20921164 (Version 3)
Quarter: 2022Q3

REPORT INFORMATION
  Report Type: Report from Study
  Country: US (occurrence: US)
  Receive Date: 20220606
  Receipt Date: 20220905
  Transmission Date: 20221026
  Serious: No
  Sender: FDA-Public Use
  Company Number: US-BRISTOL-MYERS SQUIBB COMPANY-2022-052572

PATIENT
  Age: 79 Year
  Sex: Female

DRUGS (3)
  1. REVLIMID [Suspect]
     Active Substance: LENALIDOMIDE
     Indication: Plasma cell myeloma
     Route: 048
     Dates: start: 202204
  2. REVLIMID [Suspect]
     Active Substance: LENALIDOMIDE
     Route: 048
     Dates: start: 202204
  3. REVLIMID [Suspect]
     Active Substance: LENALIDOMIDE
     Dosage: FREQ: 14
     Route: 065

REACTIONS (11)
  - Rash [Unknown]
  - Joint swelling [Unknown]
  - Peripheral swelling [Unknown]
  - Tremor [Unknown]
  - Depression [Unknown]
  - Pruritus [Unknown]
  - Nasopharyngitis [Unknown]
  - Urinary tract infection [Unknown]
  - Insomnia [Unknown]
  - Feeling cold [Unknown]
  - Feeling hot [Unknown]

NARRATIVE: CASE EVENT DATE: 20220501
